FAERS Safety Report 13329160 (Version 2)
Quarter: 2017Q1

REPORT INFORMATION
  Report Type: Spontaneous
  Country: JP (occurrence: JP)
  Receive Date: 20170313
  Receipt Date: 20170323
  Transmission Date: 20170428
  Serious: Yes (Death, Other)
  Sender: FDA-Public Use
  Company Number: JP-ROCHE-1905590

PATIENT
  Age: 70 Year
  Sex: Male

DRUGS (3)
  1. LUCENTIS [Suspect]
     Active Substance: RANIBIZUMAB
     Indication: RETINAL VEIN OCCLUSION
     Dosage: UNK
     Route: 031
     Dates: start: 20131114, end: 20151105
  2. LUCENTIS [Suspect]
     Active Substance: RANIBIZUMAB
     Dosage: UNK
     Route: 031
     Dates: start: 20141127
  3. AVASTIN [Concomitant]
     Active Substance: BEVACIZUMAB
     Indication: PRODUCT USED FOR UNKNOWN INDICATION
     Dosage: UNK
     Route: 031

REACTIONS (8)
  - Ill-defined disorder [Unknown]
  - Muscular weakness [Fatal]
  - Visual acuity reduced [Unknown]
  - Asthenia [Unknown]
  - Glioblastoma [Fatal]
  - Limb discomfort [Fatal]
  - Blood glucose increased [Unknown]
  - Retinal vein occlusion [Unknown]
